FAERS Safety Report 9991782 (Version 4)
Quarter: 2014Q2

REPORT INFORMATION
  Report Type: Spontaneous
  Country: US (occurrence: US)
  Receive Date: 20140310
  Receipt Date: 20140416
  Transmission Date: 20141212
  Serious: Yes (Hospitalization, Other)
  Sender: FDA-Public Use
  Company Number: US-PFIZER INC-2014067323

PATIENT
  Age: 31 Year
  Sex: Male
  Weight: 83.9 kg

DRUGS (2)
  1. PRISTIQ [Suspect]
     Indication: DEPRESSION
     Dosage: 50 MG, 1X/DAY
     Route: 048
     Dates: start: 201402, end: 201403
  2. PRISTIQ [Suspect]
     Indication: ANXIETY

REACTIONS (14)
  - Mania [Unknown]
  - Irritability [Unknown]
  - Thinking abnormal [Unknown]
  - Suicidal ideation [Unknown]
  - Blood pressure increased [Unknown]
  - Hypersensitivity [Unknown]
  - Insomnia [Unknown]
  - Nausea [Unknown]
  - Vomiting [Unknown]
  - Headache [Unknown]
  - Drug withdrawal syndrome [Unknown]
  - Anxiety [Unknown]
  - Anger [Unknown]
  - Abnormal behaviour [Unknown]
